FAERS Safety Report 9495685 (Version 3)
Quarter: 2013Q4

REPORT INFORMATION
  Report Type: Spontaneous
  Country: BR (occurrence: BR)
  Receive Date: 20130903
  Receipt Date: 20131127
  Transmission Date: 20140711
  Serious: Yes (Other)
  Sender: FDA-Public Use
  Company Number: PHHY2013BR095237

PATIENT
  Age: 75 Year
  Sex: Female

DRUGS (3)
  1. BUFFERIN [Suspect]
     Indication: ANTIINFLAMMATORY THERAPY
     Dosage: 9 DF, 1 DF AT MORNING AND 2 DF EVERY 6 HOURS
     Route: 048
  2. BUFFERIN [Suspect]
     Indication: OFF LABEL USE
  3. BUFFERIN [Suspect]
     Indication: ANALGESIC THERAPY

REACTIONS (4)
  - Fall [Unknown]
  - Intervertebral disc protrusion [Recovered/Resolved]
  - Movement disorder [Recovering/Resolving]
  - Incorrect drug administration duration [Unknown]
